FAERS Safety Report 24350665 (Version 1)
Quarter: 2024Q3

REPORT INFORMATION
  Report Type: Spontaneous
  Country: US (occurrence: None)
  Receive Date: 20240920
  Receipt Date: 20240920
  Transmission Date: 20241017
  Serious: Yes (Hospitalization)
  Sender: Public
  Company Number: None

PATIENT
  Age: 66 Year
  Sex: Female

DRUGS (9)
  1. MAVYRET [Suspect]
     Active Substance: GLECAPREVIR\PIBRENTASVIR
     Indication: Hepatitis C
     Dosage: OTHER QUANTITY : 300-120;?FREQUENCY : DAILY;?
     Route: 048
     Dates: start: 20240909
  2. ALENDRONATE [Concomitant]
     Active Substance: ALENDRONATE SODIUM
  3. BUSPIRONE [Concomitant]
     Active Substance: BUSPIRONE HYDROCHLORIDE
  4. DULOXETINE [Concomitant]
     Active Substance: DULOXETINE
  5. LAMOTRIGINE EXTENDED RELEASE [Concomitant]
     Active Substance: LAMOTRIGINE
  6. LOTEPREDNOL [Concomitant]
     Active Substance: LOTEPREDNOL
  7. OMEPRAZOLE [Concomitant]
     Active Substance: OMEPRAZOLE
  8. QUETIAPINE [Concomitant]
     Active Substance: QUETIAPINE
  9. trarnadol [Concomitant]

REACTIONS (2)
  - Cerebrovascular accident [None]
  - Therapy interrupted [None]

NARRATIVE: CASE EVENT DATE: 20240909
